FAERS Safety Report 10034552 (Version 3)
Quarter: 2015Q1

REPORT INFORMATION
  Report Type: Spontaneous
  Country: US (occurrence: US)
  Receive Date: 20140325
  Receipt Date: 20140325
  Transmission Date: 20150720
  Serious: Yes (Other)
  Sender: FDA-Public Use
  Company Number: US-MYLANLABS-2014S1005862

PATIENT
  Age: 6 Year
  Sex: Female

DRUGS (10)
  1. VINBLASTINE [Suspect]
     Active Substance: VINBLASTINE
     Indication: SMALL CELL CARCINOMA
     Dosage: 6 MG/M2 EVERY 3-4W (PART OF VPCBAE CHEMOTHERAPY)
     Route: 065
  2. CARBOPLATIN. [Suspect]
     Active Substance: CARBOPLATIN
     Indication: SMALL CELL CARCINOMA
     Dosage: PART OF HD-SCR CONSOLIDATION
     Route: 065
  3. CISPLATIN. [Suspect]
     Active Substance: CISPLATIN
     Indication: SMALL CELL CARCINOMA
     Dosage: 90 MG/M2 EVERY 3-4W (PART OF VPCBAE CHEMOTHERAPY)
     Route: 065
  4. ETOPOSIDE. [Suspect]
     Active Substance: ETOPOSIDE
     Indication: SMALL CELL CARCINOMA
     Dosage: 200 MG/M2 EVERY 3-4W (PART OF VPCBAE CHEMOTHERAPY)
     Route: 065
  5. BLEOMYCIN [Suspect]
     Active Substance: BLEOMYCIN SULFATE
     Indication: SMALL CELL CARCINOMA
     Dosage: 15 IU/M2 EVERY 3-4W (PART OF VPCBAE CHEMOTHERAPY)
     Route: 065
  6. CYCLOPHOSPHAMIDE. [Suspect]
     Active Substance: CYCLOPHOSPHAMIDE
     Indication: SMALL CELL CARCINOMA
     Dosage: 1000 MG/M2 EVERY 3-4W (PART OF VPCBAE CHEMOTHERAPY)
     Route: 065
  7. DOXORUBICIN [Suspect]
     Active Substance: DOXORUBICIN
     Indication: SMALL CELL CARCINOMA
     Dosage: 45 MG/M2 EVERY 3-4W (PART OF VPCBAE CHEMOTHERAPY)
     Route: 065
  8. ETOPOSIDE. [Suspect]
     Active Substance: ETOPOSIDE
     Indication: SMALL CELL CARCINOMA
     Dosage: PART OF HD-SCR CONSOLIDATION
     Route: 065
  9. MELPHALAN [Suspect]
     Active Substance: MELPHALAN
     Indication: SMALL CELL CARCINOMA
     Dosage: PART OF HD-SCR CONSOLIDATION
     Route: 065
  10. BEVACIZUMAB [Suspect]
     Active Substance: BEVACIZUMAB
     Indication: SMALL CELL CARCINOMA
     Dosage: 5 OR 10 MG/KG EVERY 2W
     Route: 065

REACTIONS (6)
  - Decreased appetite [Unknown]
  - Diarrhoea [Unknown]
  - Bone marrow failure [Unknown]
  - Febrile neutropenia [Unknown]
  - Venoocclusive liver disease [Recovered/Resolved]
  - Abdominal compartment syndrome [Recovered/Resolved]
